FAERS Safety Report 7357859-8 (Version None)
Quarter: 2011Q1

REPORT INFORMATION
  Report Type: 
  Country: None (occurrence: None)
  Receive Date: 20110309
  Receipt Date: 20110221
  Transmission Date: 20110831
  Serious: Yes (Hospitalization, Other)
  Sender: FDA-Public Use
  Company Number: 2011MA001607

PATIENT
  Age: 85 Year
  Sex: Female

DRUGS (1)
  1. METFORMIN HYDROCHLORIDE [Suspect]
     Indication: TYPE 2 DIABETES MELLITUS
     Dosage: 850 MG;TID;PO TYPE 2 DIABETES MELLITUS
     Route: 048

REACTIONS (7)
  - CYANOSIS [None]
  - OVERDOSE [None]
  - LACTIC ACIDOSIS [None]
  - COMA [None]
  - DYSPNOEA [None]
  - BLOOD POTASSIUM INCREASED [None]
  - SUICIDE ATTEMPT [None]
